FAERS Safety Report 9900881 (Version 1)
Quarter: 2014Q1

REPORT INFORMATION
  Report Type: Report from Study
  Country: US (occurrence: US)
  Receive Date: 20140217
  Receipt Date: 20140217
  Transmission Date: 20141002
  Serious: No
  Sender: FDA-Public Use
  Company Number: US-ABBVIE-13P-163-1088337-00

PATIENT
  Sex: Male
  Weight: 90.8 kg

DRUGS (7)
  1. SIMCOR 500/20 [Suspect]
     Indication: BLOOD CHOLESTEROL INCREASED
     Dosage: 500/20 MG
  2. LISINOPRIL [Concomitant]
     Indication: PRODUCT USED FOR UNKNOWN INDICATION
  3. VITAMINS [Concomitant]
     Indication: PRODUCT USED FOR UNKNOWN INDICATION
  4. BABY ASPIRIN [Concomitant]
     Indication: PRODUCT USED FOR UNKNOWN INDICATION
  5. NORTRIPTYLINE [Concomitant]
     Indication: PRODUCT USED FOR UNKNOWN INDICATION
  6. BYDUREON [Concomitant]
     Indication: PRODUCT USED FOR UNKNOWN INDICATION
  7. METFORMIN [Concomitant]
     Indication: PRODUCT USED FOR UNKNOWN INDICATION

REACTIONS (3)
  - Feeling abnormal [Recovered/Resolved]
  - Feeling hot [Recovered/Resolved]
  - Flushing [Recovered/Resolved]
